FAERS Safety Report 8636945 (Version 6)
Quarter: 2014Q1

REPORT INFORMATION
  Report Type: Spontaneous
  Country: US (occurrence: US)
  Receive Date: 20120626
  Receipt Date: 20140110
  Transmission Date: 20141002
  Serious: Yes (Hospitalization, Other)
  Sender: FDA-Public Use
  Company Number: US-PFIZER INC-2012150213

PATIENT
  Age: 87 Year
  Sex: Female
  Weight: 63.04 kg

DRUGS (3)
  1. LIPITOR [Suspect]
     Indication: BLOOD CHOLESTEROL INCREASED
     Dosage: 40 MG, DAILY
  2. NORVASC [Suspect]
     Indication: HYPERTENSION
     Dosage: 5 MG, DAILY
  3. LOPRESSOR [Concomitant]
     Indication: BLOOD PRESSURE INCREASED
     Dosage: UNK

REACTIONS (6)
  - Surgery [Unknown]
  - Arthritis [Unknown]
  - Arthropathy [Unknown]
  - Arthralgia [Unknown]
  - Throat irritation [Unknown]
  - Dysphonia [Unknown]
